FAERS Safety Report 12470233 (Version 2)
Quarter: 2016Q2

REPORT INFORMATION
  Report Type: Spontaneous
  Country: FR (occurrence: FR)
  Receive Date: 20160616
  Receipt Date: 20160630
  Transmission Date: 20160815
  Serious: Yes (Other)
  Sender: FDA-Public Use
  Company Number: FR-009507513-1606FRA005337

PATIENT
  Age: 78 Year
  Sex: Female
  Weight: 45 kg

DRUGS (5)
  1. NOXAFIL [Suspect]
     Active Substance: POSACONAZOLE
     Indication: ANTIFUNGAL PROPHYLAXIS
     Dosage: 300 MG, QD (3 TABLETS OF 100 MG QD) WITHOUT LOADING DOSE
     Route: 048
     Dates: start: 20160504
  2. RULID [Concomitant]
     Active Substance: ROXITHROMYCIN
     Dosage: 1 G, QD
     Dates: start: 20160503, end: 20160503
  3. PANTOPRAZOLE [Concomitant]
     Active Substance: PANTOPRAZOLE SODIUM
     Dosage: 40 MG, QD
     Dates: start: 20160503
  4. SULFAMETHOXAZOLE (+) TRIMETHOPRIM [Concomitant]
     Active Substance: SULFAMETHOXAZOLE\TRIMETHOPRIM
     Dosage: 150 MG, BID
     Dates: start: 20160503, end: 20160503
  5. FORTUM [Concomitant]
     Active Substance: CEFTAZIDIME
     Indication: NEUTROPENIC SEPSIS
     Dosage: 4 G, QD
     Dates: start: 20160503, end: 20160523

REACTIONS (7)
  - Hallucination [Unknown]
  - Malaise [Unknown]
  - Fatigue [Unknown]
  - Product use issue [Unknown]
  - Hypokalaemia [Recovering/Resolving]
  - Hypertension [Recovering/Resolving]
  - Hypertensive crisis [Unknown]

NARRATIVE: CASE EVENT DATE: 201605
